FAERS Safety Report 7433994-0 (Version None)
Quarter: 2011Q2

REPORT INFORMATION
  Report Type: 
  Country: None (occurrence: None)
  Receive Date: 20110425
  Receipt Date: 20110418
  Transmission Date: 20111010
  Serious: Yes (Hospitalization)
  Sender: FDA-Public Use
  Company Number: US-TEVA-277088USA

PATIENT
  Age: 90 Year
  Sex: Male

DRUGS (6)
  1. CYCLOPHOSPHAMIDE [Suspect]
  2. DOXORUBICIN [Suspect]
  3. PREDNISOLONE [Concomitant]
  4. DACARBAZINE [Suspect]
  5. VINBLASTINE [Suspect]
  6. PROCARBAZINE [Suspect]

REACTIONS (1)
  - HYPOCALCAEMIA [None]
